FAERS Safety Report 7124908 (Version 8)
Quarter: 2013Q3

REPORT INFORMATION
  Report Type: Report from Study
  Country: JP (occurrence: JP)
  Receive Date: 20090922
  Receipt Date: 20130903
  Transmission Date: 20140515
  Serious: Yes (Hospitalization, Other)
  Sender: FDA-Public Use
  Company Number: JP-ABBOTT-09P-087-0597529-00

PATIENT
  Age: 59 Year
  Sex: Female

DRUGS (12)
  1. HUMIRA 40 MG/ 0.8 ML PRE-FILLED SYRINGE [Suspect]
     Indication: RHEUMATOID ARTHRITIS
     Route: 058
     Dates: start: 20090518, end: 20090824
  2. TACROLIMUS [Suspect]
     Indication: RHEUMATOID ARTHRITIS
     Route: 048
     Dates: end: 20090615
  3. SODIUM GLUCONATE HYDRATE/L-GLUTAMINE [Suspect]
     Indication: PRODUCT USED FOR UNKNOWN INDICATION
     Route: 048
  4. PREDNISOLONE [Suspect]
     Indication: PRODUCT USED FOR UNKNOWN INDICATION
     Route: 048
     Dates: start: 20090629, end: 20090712
  5. PREDNISOLONE [Suspect]
     Dates: start: 20090713, end: 20090726
  6. PREDNISOLONE [Suspect]
     Dates: start: 20090727
  7. AZULENE [Suspect]
     Indication: PROPHYLAXIS AGAINST GASTROINTESTINAL ULCER
     Route: 048
  8. PREDNISOLONE [Concomitant]
     Indication: RHEUMATOID ARTHRITIS
     Route: 048
     Dates: end: 20090622
  9. PREDNISOLONE [Concomitant]
     Route: 048
     Dates: start: 20090623
  10. AZULENE [Concomitant]
     Indication: PRODUCT USED FOR UNKNOWN INDICATION
     Route: 048
  11. SAMLETEROL XINAFOATE/FLUTICASONE PROPIONATE [Concomitant]
     Indication: PRODUCT USED FOR UNKNOWN INDICATION
  12. SPHERICAL CARBONACEOUS ABSORBENT [Concomitant]
     Indication: PRODUCT USED FOR UNKNOWN INDICATION

REACTIONS (3)
  - Haematemesis [Unknown]
  - Organising pneumonia [Recovered/Resolved]
  - Haemoptysis [Unknown]
